FAERS Safety Report 4557975-X (Version None)
Quarter: 2005Q1

REPORT INFORMATION
  Report Type: 
  Country: None (occurrence: None)
  Receive Date: 20050121
  Receipt Date: 20040326
  Transmission Date: 20050727
  Serious: No
  Sender: FDA-Public Use
  Company Number: US-BRISTOL-MYERS SQUIBB COMPANY-12544490

PATIENT
  Age: 40 Year
  Sex: Female
  Weight: 56 kg

DRUGS (7)
  1. SERZONE [Suspect]
     Indication: DEPRESSION
     Route: 048
  2. CLARITIN [Suspect]
  3. ACIPHEX [Suspect]
  4. PREVACID [Suspect]
  5. PRILOSEC [Concomitant]
  6. ZANTAC [Concomitant]
  7. MYLANTA [Concomitant]

REACTIONS (4)
  - DRUG INEFFECTIVE [None]
  - DYSPNOEA [None]
  - GASTROOESOPHAGEAL REFLUX DISEASE [None]
  - NAUSEA [None]
